FAERS Safety Report 20958624 (Version 1)
Quarter: 2022Q2

REPORT INFORMATION
  Report Type: Spontaneous
  Country: US (occurrence: US)
  Receive Date: 20220614
  Receipt Date: 20220614
  Transmission Date: 20220720
  Serious: Yes (Other)
  Sender: FDA-Public Use
  Company Number: US-SANOFI-01139987

PATIENT
  Age: 77 Year
  Sex: Female

DRUGS (2)
  1. LANTUS [Suspect]
     Active Substance: INSULIN GLARGINE
     Indication: Diabetes mellitus
     Dosage: 50 U, QD
     Route: 058
  2. NOVOLOG [Concomitant]
     Active Substance: INSULIN ASPART

REACTIONS (9)
  - Cerebrovascular accident [Unknown]
  - Sarcoidosis [Unknown]
  - Dyspnoea [Unknown]
  - Gait disturbance [Unknown]
  - Cardiac failure [Unknown]
  - Cardiac murmur [Not Recovered/Not Resolved]
  - Chronic obstructive pulmonary disease [Unknown]
  - Knee operation [Unknown]
  - Eating disorder [Unknown]

NARRATIVE: CASE EVENT DATE: 20181113
